FAERS Safety Report 4825392-0 (Version None)
Quarter: 2005Q4

REPORT INFORMATION
  Report Type: 
  Country: None (occurrence: None)
  Receive Date: 20051109
  Receipt Date: 20051024
  Transmission Date: 20060501
  Serious: Yes (Hospitalization, Other)
  Sender: FDA-Public Use
  Company Number: PHBS2005JP13823

PATIENT
  Age: 75 Year
  Sex: Male
  Weight: 63.0046 kg

DRUGS (1)
  1. VISUDYNE [Suspect]
     Indication: MACULAR DEGENERATION
     Dates: start: 20050914, end: 20050914

REACTIONS (7)
  - ABDOMINAL PAIN UPPER [None]
  - DEPRESSED LEVEL OF CONSCIOUSNESS [None]
  - DIARRHOEA [None]
  - ENTERITIS INFECTIOUS [None]
  - SHOCK [None]
  - SYNCOPE VASOVAGAL [None]
  - TACHYCARDIA [None]
